FAERS Safety Report 6444276-8 (Version None)
Quarter: 2009Q4

REPORT INFORMATION
  Report Type: 
  Country: None (occurrence: None)
  Receive Date: 20091118
  Receipt Date: 20091110
  Transmission Date: 20100525
  Serious: Yes (Hospitalization, Other)
  Sender: FDA-Public Use
  Company Number: US-ASTRAZENECA-2006UW25196

PATIENT
  Age: 41 Year
  Sex: Female
  Weight: 93.9 kg

DRUGS (38)
  1. SEROQUEL [Suspect]
     Indication: BIPOLAR DISORDER
     Route: 048
     Dates: start: 19980101
  2. SEROQUEL [Suspect]
     Indication: DEPRESSION
     Route: 048
     Dates: start: 19980101
  3. SEROQUEL [Suspect]
     Dosage: 100-900 MG
     Route: 048
     Dates: start: 20050202
  4. SEROQUEL [Suspect]
     Dosage: 100-900 MG
     Route: 048
     Dates: start: 20050202
  5. RISPERDAL [Concomitant]
     Dates: start: 20070101
  6. PROZAC [Concomitant]
     Dosage: 20-40 MG
     Route: 048
  7. DEPO-MEDROL [Concomitant]
  8. PREDNISONE [Concomitant]
     Dosage: 5 MG-20 MG
  9. GLUCOPHAGE [Concomitant]
     Route: 048
  10. ACTOS [Concomitant]
     Dosage: 15 MG EVERYDAY, 30 MG EVERYDAY
     Route: 048
  11. TEGRETOL [Concomitant]
     Dosage: 200 MG TWICE A DAY, 200 MG THREE TIMES A DAY, 600 MG Q.H.S., 800 MG Q.H.S., 900 Q.H.S.
     Route: 048
  12. ESTRADIOL [Concomitant]
     Dosage: 2 MG TABLET 1/2 TAB EVERYDAY, 1 MG TABLET EVERYDAY
  13. EFFEXOR [Concomitant]
     Route: 048
  14. IMDUR [Concomitant]
     Route: 048
  15. BENADRYL [Concomitant]
     Indication: AGITATION
     Dosage: 50 MG EVERY FOUR HOUR
  16. BENADRYL [Concomitant]
     Indication: SLEEP DISORDER
     Dosage: 50 MG EVERY FOUR HOUR
  17. HALDOL [Concomitant]
     Dosage: 5 MG/ML EVERY 4 HOUR
  18. ALBUTEROL [Concomitant]
     Dosage: 2 PUFFS INHALED EVERY 4 HOUR
  19. LISINOPRIL [Concomitant]
     Dosage: 10 MG TABLET EVERY DAY, 20 MG TABLET EVERY DAY
     Route: 048
  20. DULCOLAX [Concomitant]
     Dosage: 5 MG TABLET-1 TO 2 TABLET EVERY DAY
  21. ADVAIR DISKUS 100/50 [Concomitant]
     Dosage: 1-2 PUFFS EVERYDAY
  22. PHENERGAN HCL [Concomitant]
  23. OXYCONTIN [Concomitant]
     Route: 048
  24. CALCIUM CITRATE [Concomitant]
     Route: 048
  25. TRAZODONE HYDROCHLORIDE [Concomitant]
     Route: 048
  26. NORVASC [Concomitant]
     Route: 048
  27. LIPITOR [Concomitant]
     Dosage: 10 MG TO 20 MG
     Route: 048
  28. EVISTA [Concomitant]
     Dosage: 50 MG, 60 MG TABLET EVERY DAY
     Route: 048
  29. MIRTAZAPINE [Concomitant]
     Route: 048
  30. METOPROLOL TARTRATE [Concomitant]
     Dosage: 25 MG, 50 MG TWICE DAILY, 100 MG ONCE DAILY
     Route: 048
  31. ACETAMINOPHEN [Concomitant]
     Indication: PAIN
     Route: 048
  32. IBUPROFEN [Concomitant]
     Dosage: 600 MG, 800 MG TABLET EVERY 6 HOURS
     Route: 048
  33. LORAZEPAM [Concomitant]
     Dosage: 1 MG TO 2 MG
  34. MEPROZINE [Concomitant]
     Dosage: 50/25 MG
  35. WELLBUTRIN [Concomitant]
     Dosage: 100 MG-150 MG
     Route: 048
  36. SONATA [Concomitant]
     Route: 048
  37. CEFZIL [Concomitant]
  38. BENICAR [Concomitant]

REACTIONS (6)
  - ANGINA UNSTABLE [None]
  - CARDIAC OPERATION [None]
  - DIABETES MELLITUS [None]
  - MYOCARDIAL INFARCTION [None]
  - OBESITY [None]
  - TYPE 2 DIABETES MELLITUS [None]
